FAERS Safety Report 11948091 (Version 2)
Quarter: 2016Q1

REPORT INFORMATION
  Report Type: Report from Study
  Country: TR (occurrence: TR)
  Receive Date: 20160125
  Receipt Date: 20160222
  Transmission Date: 20160526
  Serious: Yes (Death, Other)
  Sender: FDA-Public Use
  Company Number: TR-BRISTOL-MYERS SQUIBB COMPANY-BMS-2016-004202

PATIENT
  Age: 65 Year
  Sex: Male
  Weight: 58 kg

DRUGS (1)
  1. NIVOLUMAB [Suspect]
     Active Substance: NIVOLUMAB
     Indication: NON-SMALL CELL LUNG CANCER
     Route: 065

REACTIONS (6)
  - Metastases to skin [Fatal]
  - Ascites [Fatal]
  - Death [Fatal]
  - Hypoxia [Unknown]
  - Lymphangiosis carcinomatosa [Fatal]
  - Respiratory distress [Fatal]

NARRATIVE: CASE EVENT DATE: 20151224
